FAERS Safety Report 23076327 (Version 1)
Quarter: 2023Q4

REPORT INFORMATION
  Report Type: Spontaneous
  Country: US (occurrence: US)
  Receive Date: 20231017
  Receipt Date: 20231017
  Transmission Date: 20240110
  Serious: Yes (Hospitalization)
  Sender: FDA-Public Use
  Company Number: US-MIRATI-MT2023PM05008

PATIENT

DRUGS (1)
  1. KRAZATI [Suspect]
     Active Substance: ADAGRASIB
     Indication: Lung neoplasm malignant
     Dosage: 600 MG, BID (3 TABLETS TWICE DAILY)
     Route: 048
     Dates: start: 20230825, end: 20231004

REACTIONS (1)
  - Hypotension [Recovered/Resolved]
